FAERS Safety Report 23933229 (Version 1)
Quarter: 2024Q2

REPORT INFORMATION
  Report Type: Spontaneous
  Country: JP (occurrence: JP)
  Receive Date: 20240603
  Receipt Date: 20240603
  Transmission Date: 20240716
  Serious: Yes (Hospitalization)
  Sender: FDA-Public Use
  Company Number: JP-NShinyaku-EVA202403378ZZLILLY

PATIENT
  Age: 65 Year
  Sex: Female

DRUGS (8)
  1. TADALAFIL [Suspect]
     Active Substance: TADALAFIL
     Indication: Pulmonary arterial hypertension
     Dosage: 40 MG, DAILY
     Route: 048
  2. TADALAFIL [Suspect]
     Active Substance: TADALAFIL
  3. UPTRAVI [Concomitant]
     Active Substance: SELEXIPAG
     Dosage: 1600 UG
  4. OPSUMIT [Concomitant]
     Active Substance: MACITENTAN
     Dosage: 10 MG
  5. PREDNISOLONE [Concomitant]
     Active Substance: PREDNISOLONE
  6. AZATHIOPRINE [Concomitant]
     Active Substance: AZATHIOPRINE
  7. WARFARIN POTASSIUM [Concomitant]
     Active Substance: WARFARIN POTASSIUM
     Dosage: UNKNOWN
  8. DIGOXIN [Concomitant]
     Active Substance: DIGOXIN
     Dosage: 0.125 MG

REACTIONS (2)
  - Cardiac failure [Unknown]
  - Pulmonary arterial wedge pressure increased [Unknown]
